FAERS Safety Report 16208088 (Version 1)
Quarter: 2019Q2

REPORT INFORMATION
  Report Type: Spontaneous
  Country: US (occurrence: US)
  Receive Date: 20190417
  Receipt Date: 20190417
  Transmission Date: 20190711
  Serious: Yes (Other)
  Sender: FDA-Public Use
  Company Number: US-BAYER-2019-072338

PATIENT
  Age: 24 Year
  Sex: Male
  Weight: 77 kg

DRUGS (1)
  1. CORICIDIN HBP MAXIMUM STRENGTH FLU [Suspect]
     Active Substance: ACETAMINOPHEN\CHLORPHENIRAMINE MALEATE\DEXTROMETHORPHAN HYDROBROMIDE
     Indication: SINUSITIS
     Dosage: 1 DF, BID
     Route: 048
     Dates: start: 20190406, end: 20190409

REACTIONS (5)
  - Fatigue [Unknown]
  - Asthenia [Unknown]
  - Agitation [Unknown]
  - Shock [Unknown]
  - Nervousness [Unknown]

NARRATIVE: CASE EVENT DATE: 20190408
